FAERS Safety Report 18817851 (Version 6)
Quarter: 2023Q1

REPORT INFORMATION
  Report Type: Spontaneous
  Country: US (occurrence: US)
  Receive Date: 20210201
  Receipt Date: 20230310
  Transmission Date: 20230417
  Serious: Yes (Life-Threatening, Hospitalization, Other)
  Sender: FDA-Public Use
  Company Number: US-PFIZER INC-2021075201

PATIENT
  Age: 67 Year
  Sex: Male
  Weight: 73.48 kg

DRUGS (4)
  1. PRISTIQ EXTENDED-RELEASE [Suspect]
     Active Substance: DESVENLAFAXINE SUCCINATE
     Indication: Bipolar I disorder
     Dosage: 50 MG, DAILY
     Route: 048
     Dates: start: 2012
  2. PRISTIQ EXTENDED-RELEASE [Suspect]
     Active Substance: DESVENLAFAXINE SUCCINATE
     Indication: Anxiety
  3. LAMICTAL [Concomitant]
     Active Substance: LAMOTRIGINE
     Indication: Bipolar I disorder
     Dosage: 150 MG, 1X/DAY
     Dates: start: 2005
  4. LAMICTAL [Concomitant]
     Active Substance: LAMOTRIGINE
     Indication: Anxiety

REACTIONS (8)
  - Peripheral artery aneurysm [Not Recovered/Not Resolved]
  - Cardiac pacemaker insertion [Recovered/Resolved]
  - Vascular dementia [Not Recovered/Not Resolved]
  - Cerebrovascular accident [Unknown]
  - Sinus node dysfunction [Not Recovered/Not Resolved]
  - Supraventricular tachycardia [Not Recovered/Not Resolved]
  - Off label use [Unknown]
  - Cardiac disorder [Unknown]

NARRATIVE: CASE EVENT DATE: 20120101
